FAERS Safety Report 7933172-2 (Version None)
Quarter: 2011Q4

REPORT INFORMATION
  Report Type: 
  Country: None (occurrence: None)
  Receive Date: 20111122
  Receipt Date: 20111111
  Transmission Date: 20120403
  Serious: Yes (Other)
  Sender: FDA-Public Use
  Company Number: CO-JNJFOC-20111105649

PATIENT
  Age: 48 Year
  Sex: Female

DRUGS (4)
  1. REMICADE [Suspect]
     Indication: CROHN'S DISEASE
     Route: 042
     Dates: start: 20101101, end: 20110701
  2. REMICADE [Suspect]
     Route: 042
     Dates: start: 20101101, end: 20110701
  3. REMICADE [Suspect]
     Indication: ANKYLOSING SPONDYLITIS
     Route: 042
     Dates: start: 20111110
  4. REMICADE [Suspect]
     Route: 042
     Dates: start: 20111110

REACTIONS (6)
  - DEPRESSION [None]
  - WEIGHT INCREASED [None]
  - DIARRHOEA [None]
  - ASTHENIA [None]
  - PSORIASIS [None]
  - ARTHROPATHY [None]
